FAERS Safety Report 7454117-8 (Version None)
Quarter: 2011Q2

REPORT INFORMATION
  Report Type: 
  Country: None (occurrence: None)
  Receive Date: 20110503
  Receipt Date: 20110422
  Transmission Date: 20111010
  Serious: Yes (Hospitalization)
  Sender: FDA-Public Use
  Company Number: US-BIOGENIDEC-2011BI015081

PATIENT
  Age: 47 Year
  Sex: Female

DRUGS (4)
  1. LYRICA [Concomitant]
  2. BACLOFEN [Concomitant]
  3. TYSABRI [Suspect]
     Indication: MULTIPLE SCLEROSIS
     Route: 042
     Dates: start: 20080205
  4. BONIVA [Concomitant]

REACTIONS (3)
  - STATUS EPILEPTICUS [None]
  - ENCEPHALITIS HERPES [None]
  - ENCEPHALITIS [None]
